FAERS Safety Report 5363896-5 (Version None)
Quarter: 2007Q2

REPORT INFORMATION
  Report Type: 
  Country: None (occurrence: None)
  Receive Date: 20070530
  Receipt Date: 20070109
  Transmission Date: 20071010
  Serious: No
  Sender: FDA-Public Use
  Company Number: 2007PV028105

PATIENT
  Age: 65 Year
  Sex: Female
  Weight: 60.782 kg

DRUGS (4)
  1. BYETTA [Suspect]
     Indication: DRUG USE FOR UNKNOWN INDICATION
     Dosage: SC, SC
     Route: 058
     Dates: start: 20060101, end: 20060101
  2. BYETTA [Suspect]
     Indication: DRUG USE FOR UNKNOWN INDICATION
     Dosage: SC, SC
     Route: 058
     Dates: start: 20060101
  3. LAMICTAL [Suspect]
     Indication: BIPOLAR DISORDER
     Dosage: 50 MG; QD; PO
     Route: 048
     Dates: start: 20061120
  4. GLIPIZIDE [Concomitant]

REACTIONS (3)
  - BLOOD GLUCOSE DECREASED [None]
  - HYPOGLYCAEMIA [None]
  - WEIGHT DECREASED [None]
